FAERS Safety Report 5880218-1 (Version None)
Quarter: 2008Q3

REPORT INFORMATION
  Report Type: 
  Country: None (occurrence: None)
  Receive Date: 20080910
  Receipt Date: 20080910
  Transmission Date: 20090109
  Serious: Yes (Hospitalization)
  Sender: FDA-Public Use
  Company Number: None

PATIENT
  Age: 57 Year
  Sex: Female
  Weight: 86.1834 kg

DRUGS (13)
  1. PALIPERIDONE   6MG [Suspect]
     Indication: PSYCHOTIC DISORDER
     Dosage: 6MG HS PO
     Route: 048
     Dates: start: 20080410, end: 20080410
  2. ZOLPIDEM [Suspect]
     Indication: INSOMNIA
     Dosage: 10MG HS PO
     Route: 048
     Dates: start: 20080409, end: 20080410
  3. NOVOLOG [Concomitant]
  4. ASPIRIN [Concomitant]
  5. ESOMEPRAZOLE MAGNESIUM [Concomitant]
  6. ACARBOSE [Concomitant]
  7. LABETALOL HCL [Concomitant]
  8. ENALAPRIL [Concomitant]
  9. FUROSEMIDE [Concomitant]
  10. HEPARIN [Concomitant]
  11. GLARGINE [Concomitant]
  12. SIMVASTATIN [Concomitant]
  13. ZOLPIDEM [Concomitant]

REACTIONS (2)
  - AGITATION [None]
  - CONVULSION [None]
